FAERS Safety Report 6644639-1 (Version None)
Quarter: 2010Q1

REPORT INFORMATION
  Report Type: 
  Country: None (occurrence: None)
  Receive Date: 20100322
  Receipt Date: 20100313
  Transmission Date: 20100710
  Serious: Yes (Disabling)
  Sender: FDA-Public Use
  Company Number: US-SANOFI-AVENTIS-2010SA015637

PATIENT
  Sex: Male

DRUGS (2)
  1. LANTUS [Suspect]
     Dosage: DOSE:54 UNIT(S)
     Route: 058
  2. SOLOSTAR [Suspect]

REACTIONS (1)
  - ROAD TRAFFIC ACCIDENT [None]
